FAERS Safety Report 4784948-4 (Version None)
Quarter: 2005Q3

REPORT INFORMATION
  Report Type: 
  Country: None (occurrence: None)
  Receive Date: 20050928
  Receipt Date: 20050916
  Transmission Date: 20060218
  Serious: Yes (Hospitalization, Other)
  Sender: FDA-Public Use
  Company Number: KII-2005-0018668

PATIENT
  Age: 55 Year
  Sex: Male

DRUGS (9)
  1. MORPHINE SULFATE [Suspect]
     Dosage: ORAL
     Route: 048
  2. BENZODIAZEPINE DERIVATIVES [Suspect]
     Dosage: ORAL
     Route: 048
  3. ORGANIC NITRATES [Suspect]
  4. ASPIRIN [Suspect]
  5. BETA BLOCKING AGENTS [Suspect]
  6. SSRI [Suspect]
  7. OTHER HAEMATOLOGICAL AGENTS [Suspect]
  8. CYCLOPHENAZINE [Suspect]
  9. TRAZODONE HCL [Suspect]

REACTIONS (24)
  - ALANINE AMINOTRANSFERASE INCREASED [None]
  - ASPARTATE AMINOTRANSFERASE INCREASED [None]
  - BLOOD ALBUMIN INCREASED [None]
  - BLOOD ALKALINE PHOSPHATASE INCREASED [None]
  - BLOOD BILIRUBIN INCREASED [None]
  - BLOOD GLUCOSE INCREASED [None]
  - BLOOD PH INCREASED [None]
  - BLOOD POTASSIUM DECREASED [None]
  - BODY TEMPERATURE INCREASED [None]
  - CONFUSIONAL STATE [None]
  - DEPRESSED LEVEL OF CONSCIOUSNESS [None]
  - ELECTROCARDIOGRAM ABNORMAL [None]
  - ELECTROCARDIOGRAM QT PROLONGED [None]
  - ELECTROCARDIOGRAM ST SEGMENT DEPRESSION [None]
  - HYPOVENTILATION [None]
  - JAUNDICE [None]
  - MULTIPLE DRUG OVERDOSE [None]
  - PNEUMONIA [None]
  - PO2 DECREASED [None]
  - PROTHROMBIN TIME PROLONGED [None]
  - SINUS ARRHYTHMIA [None]
  - SOMNOLENCE [None]
  - SPEECH DISORDER [None]
  - TACHYPNOEA [None]
